FAERS Safety Report 8247223-1 (Version None)
Quarter: 2012Q1

REPORT INFORMATION
  Report Type: 
  Country: None (occurrence: None)
  Receive Date: 20120330
  Receipt Date: 20120316
  Transmission Date: 20120608
  Serious: No
  Sender: FDA-Public Use
  Company Number: US-ENDO PHARMACEUTICALS INC.-ENDC20120015

PATIENT
  Sex: Male

DRUGS (1)
  1. OXYCODONE AND ACETAMINOPHEN [Suspect]
     Indication: PAIN
     Dosage: 10/325 MG
     Route: 048
     Dates: start: 20100101, end: 20110201

REACTIONS (2)
  - DRUG INEFFECTIVE [None]
  - ABDOMINAL PAIN UPPER [None]
